FAERS Safety Report 9247696 (Version 1)
Quarter: 2013Q2

REPORT INFORMATION
  Report Type: Spontaneous
  Country: PE (occurrence: PE)
  Receive Date: 20130423
  Receipt Date: 20130423
  Transmission Date: 20140414
  Serious: Yes (Other)
  Sender: FDA-Public Use
  Company Number: PE-PFIZER INC-2013122648

PATIENT
  Age: 23 Year
  Sex: Male

DRUGS (1)
  1. DETRUSITOL [Suspect]
     Indication: PROSTATITIS
     Dosage: UNK
     Route: 048
     Dates: start: 201111, end: 201201

REACTIONS (4)
  - Large intestinal obstruction [Not Recovered/Not Resolved]
  - Constipation [Not Recovered/Not Resolved]
  - Abdominal pain [Not Recovered/Not Resolved]
  - Dysuria [Not Recovered/Not Resolved]
